FAERS Safety Report 6804251-8 (Version None)
Quarter: 2010Q2

REPORT INFORMATION
  Report Type: 
  Country: None (occurrence: None)
  Receive Date: 20100628
  Receipt Date: 20070108
  Transmission Date: 20101027
  Serious: Yes (Other)
  Sender: FDA-Public Use
  Company Number: US-PFIZER INC-2007002859

PATIENT
  Sex: Male
  Weight: 85.7 kg

DRUGS (4)
  1. DOSTINEX [Suspect]
     Indication: PROLACTINOMA
     Dates: start: 20060901
  2. VITAMINS [Concomitant]
  3. PRILOSEC [Concomitant]
     Indication: GASTROOESOPHAGEAL REFLUX DISEASE
     Dates: start: 20061227
  4. TENUATE [Concomitant]
     Indication: WEIGHT CONTROL
     Dates: start: 20061227

REACTIONS (1)
  - CARDIAC VALVE DISEASE [None]
